FAERS Safety Report 4749038-5 (Version None)
Quarter: 2005Q3

REPORT INFORMATION
  Report Type: 
  Country: None (occurrence: None)
  Receive Date: 20050819
  Receipt Date: 20050810
  Transmission Date: 20060218
  Serious: Yes (Other)
  Sender: FDA-Public Use
  Company Number: AR-JNJFOC-20050802928

PATIENT
  Age: 22 Year
  Sex: Female
  Weight: 47.5 kg

DRUGS (2)
  1. ORTHO EVRA [Suspect]
     Indication: CONTRACEPTION
     Route: 062
     Dates: start: 20040401, end: 20050701
  2. 5-ASA [Concomitant]
     Indication: CROHN'S DISEASE

REACTIONS (3)
  - LOSS OF CONSCIOUSNESS [None]
  - RENAL FAILURE [None]
  - RENAL FAILURE CHRONIC [None]
